FAERS Safety Report 25218763 (Version 6)
Quarter: 2025Q3

REPORT INFORMATION
  Report Type: Report from Study
  Country: US (occurrence: US)
  Receive Date: 20250421
  Receipt Date: 20250924
  Transmission Date: 20251020
  Serious: Yes (Other)
  Sender: TAKEDA
  Company Number: US-TAKEDA-2025TUS013948

PATIENT
  Sex: Male
  Weight: 104 kg

DRUGS (31)
  1. HUMAN IMMUNOGLOBULIN G\HYALURONIDASE RECOMBINANT HUMAN [Suspect]
     Active Substance: HUMAN IMMUNOGLOBULIN G\HYALURONIDASE (HUMAN RECOMBINANT)
     Indication: Immunodeficiency common variable
     Dosage: 40 GRAM, Q3WEEKS
  2. HUMAN IMMUNOGLOBULIN G\HYALURONIDASE RECOMBINANT HUMAN [Suspect]
     Active Substance: HUMAN IMMUNOGLOBULIN G\HYALURONIDASE (HUMAN RECOMBINANT)
     Indication: Immune system disorder
  3. DUPIXENT [Suspect]
     Active Substance: DUPILUMAB
     Indication: Product used for unknown indication
  4. ACETAMINOPHEN [Concomitant]
     Active Substance: ACETAMINOPHEN
  5. EPINEPHRINE [Concomitant]
     Active Substance: EPINEPHRINE
  6. FLOMAX [Concomitant]
     Active Substance: TAMSULOSIN HYDROCHLORIDE
  7. TADALAFIL [Concomitant]
     Active Substance: TADALAFIL
  8. APPLE CIDER VINEGAR [Concomitant]
     Active Substance: APPLE CIDER VINEGAR
  9. NAC [Concomitant]
  10. COLACE [Concomitant]
     Active Substance: DOCUSATE SODIUM
  11. TESTOSTERONE CYPIONATE [Concomitant]
     Active Substance: TESTOSTERONE CYPIONATE
  12. HERBALS [Concomitant]
     Active Substance: HERBALS
  13. TYLENOL EXTRA STRENGTH [Concomitant]
     Active Substance: ACETAMINOPHEN
  14. KETOCONAZOLE [Concomitant]
     Active Substance: KETOCONAZOLE
  15. NUZYRA [Concomitant]
     Active Substance: OMADACYCLINE
  16. NEXIUM [Concomitant]
     Active Substance: ESOMEPRAZOLE MAGNESIUM
  17. PULMICORT TURBUHALER [Concomitant]
     Active Substance: BUDESONIDE
  18. HERBALS\TURMERIC [Concomitant]
     Active Substance: HERBALS\TURMERIC
  19. LIDOCAINE [Concomitant]
     Active Substance: LIDOCAINE
  20. ACETYLCYSTEINE [Concomitant]
     Active Substance: ACETYLCYSTEINE
  21. DOXYCYCLINE [Concomitant]
     Active Substance: DOXYCYCLINE
  22. TOBRAMYCIN [Concomitant]
     Active Substance: TOBRAMYCIN
  23. LINZESS [Concomitant]
     Active Substance: LINACLOTIDE
  24. CLARITIN [Concomitant]
     Active Substance: LORATADINE
  25. ASPIRIN [Concomitant]
     Active Substance: ASPIRIN
  26. MONTELUKAST SODIUM [Concomitant]
     Active Substance: MONTELUKAST SODIUM
  27. SACCHAROMYCES CEREVISIAE [Concomitant]
     Active Substance: SACCHAROMYCES CEREVISIAE
  28. DIPHENHYDRAMINE HYDROCHLORIDE [Concomitant]
     Active Substance: DIPHENHYDRAMINE HYDROCHLORIDE
  29. VITAMIN D3 [Concomitant]
     Active Substance: CHOLECALCIFEROL
  30. ONDANSETRON HYDROCHLORIDE [Concomitant]
     Active Substance: ONDANSETRON HYDROCHLORIDE
  31. EPIPEN [Concomitant]
     Active Substance: EPINEPHRINE

REACTIONS (15)
  - Pneumonia [Unknown]
  - Epididymitis [Unknown]
  - Prostate infection [Unknown]
  - Sinusitis [Unknown]
  - Inflammation [Unknown]
  - Sinus disorder [Unknown]
  - Infection [Unknown]
  - Nasopharyngitis [Unknown]
  - Middle insomnia [Unknown]
  - Prostatitis [Unknown]
  - Cystitis [Unknown]
  - Night sweats [Unknown]
  - Urinary tract infection [Unknown]
  - Product colour issue [Unknown]
  - Inappropriate schedule of product administration [Unknown]
